FAERS Safety Report 5100443-7 (Version None)
Quarter: 2006Q3

REPORT INFORMATION
  Report Type: 
  Country: None (occurrence: None)
  Receive Date: 20060731
  Receipt Date: 20060616
  Transmission Date: 20061208
  Serious: No
  Sender: FDA-Public Use
  Company Number: 2006PV015849

PATIENT
  Sex: Male

DRUGS (4)
  1. BYETTA [Suspect]
     Indication: DRUG USE FOR UNKNOWN INDICATION
     Dosage: 5 MCG;BID;SC
     Route: 058
     Dates: start: 20060601
  2. NPH INSULIN [Concomitant]
  3. NOVOLIN [Concomitant]
  4. LANTUS [Concomitant]

REACTIONS (1)
  - WEIGHT DECREASED [None]
